FAERS Safety Report 17728594 (Version 3)
Quarter: 2020Q2

REPORT INFORMATION
  Report Type: Spontaneous
  Country: BR (occurrence: BR)
  Receive Date: 20200430
  Receipt Date: 20200507
  Transmission Date: 20200714
  Serious: Yes (Other)
  Sender: FDA-Public Use
  Company Number: BR-PFIZER INC-2020173287

PATIENT
  Age: 35 Year
  Sex: Male

DRUGS (2)
  1. FLUCONAZOLE. [Suspect]
     Active Substance: FLUCONAZOLE
     Indication: ONYCHOMYCOSIS
     Dosage: 100 MG (INITIAL USE)
     Route: 048
  2. FLUCONAZOLE. [Suspect]
     Active Substance: FLUCONAZOLE
     Dosage: 100 MG, WEEKLY (ONCE A WEEK ORALLY FOR AN ADDITIONAL 2 WEEKS)
     Route: 048

REACTIONS (1)
  - Erythema multiforme [Recovered/Resolved]
